FAERS Safety Report 14541985 (Version 1)
Quarter: 2018Q1

REPORT INFORMATION
  Report Type: Spontaneous
  Country: AT (occurrence: AT)
  Receive Date: 20180216
  Receipt Date: 20180216
  Transmission Date: 20180509
  Serious: Yes (Disabling)
  Sender: FDA-Public Use
  Company Number: AT-OTSUKA-DJ20122876

PATIENT
  Age: 20 Year
  Sex: Female

DRUGS (14)
  1. QUETIAPINE FUMARATE. [Suspect]
     Active Substance: QUETIAPINE FUMARATE
     Indication: ANOREXIA NERVOSA
     Dosage: UNK
     Route: 065
     Dates: start: 2010, end: 201104
  2. ZELDOX [Suspect]
     Active Substance: ZIPRASIDONE
     Indication: ANOREXIA NERVOSA
     Dosage: UNK
     Route: 065
     Dates: start: 2009, end: 2010
  3. ABILIFY [Suspect]
     Active Substance: ARIPIPRAZOLE
     Indication: DEPRESSION
     Dosage: 15 MG, UNK
     Route: 065
     Dates: start: 2010
  4. LITHIUM. [Suspect]
     Active Substance: LITHIUM
     Indication: ANOREXIA NERVOSA
     Dosage: UNK
     Route: 065
     Dates: start: 201104
  5. ZELDOX [Suspect]
     Active Substance: ZIPRASIDONE
     Indication: DEPRESSION
  6. PANTOLOC [Concomitant]
     Active Substance: PANTOPRAZOLE SODIUM
     Indication: PRODUCT USED FOR UNKNOWN INDICATION
     Dosage: UNK
     Route: 065
     Dates: start: 2010
  7. EUTHYROX [Concomitant]
     Active Substance: LEVOTHYROXINE SODIUM
     Indication: PRODUCT USED FOR UNKNOWN INDICATION
     Dosage: UNK
     Route: 065
  8. LITHIUM. [Suspect]
     Active Substance: LITHIUM
     Indication: DEPRESSION
  9. LEXAPRO [Suspect]
     Active Substance: ESCITALOPRAM OXALATE
     Indication: ANOREXIA NERVOSA
     Dosage: 20 MG, QD
     Route: 065
     Dates: start: 2009
  10. QUETIAPINE FUMARATE. [Suspect]
     Active Substance: QUETIAPINE FUMARATE
     Indication: DEPRESSION
  11. ABILIFY [Suspect]
     Active Substance: ARIPIPRAZOLE
     Indication: ANOREXIA NERVOSA
  12. CIPRALEX [Suspect]
     Active Substance: ESCITALOPRAM OXALATE
     Indication: ANOREXIA NERVOSA
     Dosage: UNK
     Route: 065
     Dates: start: 2009
  13. LEXAPRO [Suspect]
     Active Substance: ESCITALOPRAM OXALATE
     Indication: DEPRESSION
  14. TRITTICO [Concomitant]
     Active Substance: TRAZODONE HYDROCHLORIDE
     Indication: PRODUCT USED FOR UNKNOWN INDICATION
     Dosage: 150 MG, QD
     Route: 065
     Dates: start: 2010, end: 201104

REACTIONS (2)
  - Weight increased [Not Recovered/Not Resolved]
  - Spinal disorder [Not Recovered/Not Resolved]

NARRATIVE: CASE EVENT DATE: 2010
